FAERS Safety Report 16666294 (Version 3)
Quarter: 2019Q4

REPORT INFORMATION
  Report Type: Spontaneous
  Country: US (occurrence: US)
  Receive Date: 20190805
  Receipt Date: 20191120
  Transmission Date: 20200122
  Serious: Yes (Hospitalization, Disabling, Other)
  Sender: FDA-Public Use
  Company Number: US-AMGEN INC.-USASL2019121663

PATIENT
  Age: 30 Year
  Sex: Female
  Weight: 83.9 kg

DRUGS (9)
  1. TOPAMAX [Concomitant]
     Active Substance: TOPIRAMATE
  2. TRAZODONE [Concomitant]
     Active Substance: TRAZODONE HYDROCHLORIDE
     Dosage: UNK
  3. CYMBALTA [Concomitant]
     Active Substance: DULOXETINE HYDROCHLORIDE
     Dosage: UNK
  4. VITAMIN B12 [Concomitant]
     Active Substance: CYANOCOBALAMIN
     Dosage: UNK
  5. ZEMBRACE SYMTOUCH [Concomitant]
     Active Substance: SUMATRIPTAN SUCCINATE
     Dosage: UNK
  6. VITAMIN B [Concomitant]
     Active Substance: VITAMIN B
  7. AIMOVIG [Suspect]
     Active Substance: ERENUMAB-AOOE
     Indication: MIGRAINE
     Dosage: 70 MILLIGRAM, QMO
     Route: 058
     Dates: start: 20190321
  8. JUNEL FE 1/20 [Concomitant]
     Active Substance: ETHINYL ESTRADIOL\NORETHINDRONE ACETATE
     Dosage: UNK
  9. TRIPTAN [OXITRIPTAN] [Concomitant]
     Active Substance: OXITRIPTAN

REACTIONS (2)
  - Lateral medullary syndrome [Not Recovered/Not Resolved]
  - Vertebral artery dissection [Recovered/Resolved with Sequelae]

NARRATIVE: CASE EVENT DATE: 20190703
